FAERS Safety Report 9663825 (Version 3)
Quarter: 2013Q4

REPORT INFORMATION
  Report Type: Spontaneous
  Country: JP (occurrence: JP)
  Receive Date: 20131101
  Receipt Date: 20131120
  Transmission Date: 20140711
  Serious: Yes (Disabling)
  Sender: FDA-Public Use
  Company Number: JP-AMGEN-JPNSP2013071686

PATIENT
  Age: 95 Year
  Sex: Female
  Weight: 50 kg

DRUGS (15)
  1. PRALIA [Suspect]
     Indication: OSTEOPOROSIS
     Dosage: 60 MG, UNK
     Route: 058
     Dates: start: 20130926
  2. EDIROL [Concomitant]
     Route: 065
  3. DEPAS [Concomitant]
     Route: 065
     Dates: start: 200002
  4. PURSENNID                          /00571902/ [Concomitant]
     Route: 065
     Dates: start: 200004
  5. UNISIA [Concomitant]
     Dosage: 1 DOSE: 1
     Route: 065
     Dates: start: 200009
  6. GASTER D [Concomitant]
     Route: 065
     Dates: start: 200003
  7. LIPITOR [Concomitant]
     Route: 065
     Dates: start: 200003
  8. AROTINOLOL HYDROCHLORIDE [Concomitant]
     Route: 065
     Dates: start: 200012
  9. GASMOTIN [Concomitant]
     Route: 065
     Dates: start: 200003
  10. LOXONIN [Concomitant]
     Dosage: UNKNOWN
     Route: 065
     Dates: start: 200002
  11. EURAX H [Concomitant]
     Dosage: UNKNOWN
     Route: 065
     Dates: start: 200012
  12. EDIROL(ELDECALCITOL) [Concomitant]
     Dosage: 1 DOSE: 1
     Route: 065
  13. PURSENNID [Concomitant]
     Route: 065
     Dates: start: 200004
  14. UNISIA (CANDESARTAN CILEXETIL_AMLODIPINE BESILATE COMBINED DRUG) [Concomitant]
     Dosage: 1 DOSE: 1
     Route: 065
     Dates: start: 200009
  15. LOXONIN TAPE [Concomitant]
     Dosage: UNKNOWN
     Route: 065
     Dates: start: 200002

REACTIONS (1)
  - Muscular weakness [Recovering/Resolving]
